FAERS Safety Report 4635518-X (Version None)
Quarter: 2005Q2

REPORT INFORMATION
  Report Type: 
  Country: None (occurrence: None)
  Receive Date: 20050414
  Receipt Date: 20050412
  Transmission Date: 20051028
  Serious: Yes (Hospitalization)
  Sender: FDA-Public Use
  Company Number: NL-MERCK-0504NLD00015

PATIENT
  Age: 66 Year
  Sex: Female

DRUGS (3)
  1. FOSAMAX [Suspect]
     Route: 048
  2. MESALAMINE [Concomitant]
     Route: 048
  3. FERROUS SULFATE [Concomitant]
     Route: 065

REACTIONS (1)
  - GASTRIC PERFORATION [None]
